FAERS Safety Report 24921642 (Version 1)
Quarter: 2025Q1

REPORT INFORMATION
  Report Type: Spontaneous
  Country: US (occurrence: None)
  Receive Date: 20250204
  Receipt Date: 20250204
  Transmission Date: 20250409
  Serious: Yes (Hospitalization)
  Sender: FDA-CTU
  Company Number: None

PATIENT
  Age: 61 Year
  Sex: Female
  Weight: 62.9 kg

DRUGS (4)
  1. FLUOROURACIL [Suspect]
     Active Substance: FLUOROURACIL
     Dates: end: 20241011
  2. XELODA [Suspect]
     Active Substance: CAPECITABINE
     Dates: end: 20240508
  3. LEUCOVORIN CALCIUM [Suspect]
     Active Substance: LEUCOVORIN CALCIUM
     Dates: end: 20241009
  4. OXALIPLATIN [Suspect]
     Active Substance: OXALIPLATIN
     Dates: end: 20241009

REACTIONS (14)
  - Abdominal pain upper [None]
  - Flank pain [None]
  - Nausea [None]
  - Vomiting [None]
  - Gastrooesophageal reflux disease [None]
  - Faeces discoloured [None]
  - Decreased appetite [None]
  - Taste disorder [None]
  - Weight decreased [None]
  - Dyspepsia [None]
  - Loss of personal independence in daily activities [None]
  - Decreased appetite [None]
  - Food intolerance [None]
  - Failure to thrive [None]

NARRATIVE: CASE EVENT DATE: 20250126
